FAERS Safety Report 9721393 (Version 2)
Quarter: 2013Q4

REPORT INFORMATION
  Report Type: Spontaneous
  Country: US (occurrence: US)
  Receive Date: 20131129
  Receipt Date: 20131231
  Transmission Date: 20140711
  Serious: No
  Sender: FDA-Public Use
  Company Number: US-PFIZER INC-2013341029

PATIENT
  Age: 55 Year
  Sex: Female

DRUGS (8)
  1. ZOLOFT [Suspect]
     Dosage: UNK
  2. CLONIDINE [Suspect]
     Dosage: UNK
  3. OXYBUTYNIN [Suspect]
     Dosage: UNK
  4. PAXIL [Suspect]
     Dosage: UNK
  5. PROZAC [Suspect]
     Dosage: UNK
  6. CLONAZEPAM [Suspect]
     Dosage: UNK
  7. SYNTHROID [Concomitant]
     Dosage: UNK
  8. PREMARIN [Concomitant]
     Dosage: UNK

REACTIONS (1)
  - Drug hypersensitivity [Unknown]
